FAERS Safety Report 8307102-8 (Version None)
Quarter: 2012Q2

REPORT INFORMATION
  Report Type: 
  Country: None (occurrence: None)
  Receive Date: 20120424
  Receipt Date: 20120418
  Transmission Date: 20120825
  Serious: Yes (Hospitalization)
  Sender: FDA-Public Use
  Company Number: PHHY2012MX023332

PATIENT
  Age: 30 Year
  Sex: Female

DRUGS (2)
  1. GILENYA [Suspect]
     Indication: RELAPSING-REMITTING MULTIPLE SCLEROSIS
     Dosage: 0.5 MG, QD
     Route: 048
  2. GILENYA [Suspect]
     Dosage: 0.5 MG, QD
     Route: 048

REACTIONS (8)
  - SOMNOLENCE [None]
  - BLOOD THYROID STIMULATING HORMONE INCREASED [None]
  - HEART RATE DECREASED [None]
  - WEIGHT INCREASED [None]
  - ANTI-THYROID ANTIBODY POSITIVE [None]
  - TRI-IODOTHYRONINE DECREASED [None]
  - HYPOTHYROIDISM [None]
  - GENERALISED OEDEMA [None]
